FAERS Safety Report 7369685-4 (Version None)
Quarter: 2011Q1

REPORT INFORMATION
  Report Type: 
  Country: None (occurrence: None)
  Receive Date: 20110323
  Receipt Date: 20110316
  Transmission Date: 20110831
  Serious: Yes (Other)
  Sender: FDA-Public Use
  Company Number: US-BRISTOL-MYERS SQUIBB COMPANY-15615511

PATIENT
  Age: 10 Year
  Sex: Male

DRUGS (2)
  1. GUANFACINE HYDROCHLORIDE [Suspect]
  2. ABILIFY [Suspect]
     Dosage: INITIATED 2.5MG

REACTIONS (1)
  - IDIOPATHIC THROMBOCYTOPENIC PURPURA [None]
